FAERS Safety Report 18251765 (Version 1)
Quarter: 2020Q3

REPORT INFORMATION
  Report Type: Spontaneous
  Country: JP (occurrence: JP)
  Receive Date: 20200910
  Receipt Date: 20200910
  Transmission Date: 20201103
  Serious: Yes (Hospitalization)
  Sender: FDA-Public Use
  Company Number: JP-PFIZER INC-2020346580

PATIENT
  Age: 68 Year
  Sex: Female

DRUGS (3)
  1. SULFASALAZINE. [Suspect]
     Active Substance: SULFASALAZINE
     Dosage: UNK
     Route: 048
  2. METHOTREXATE SODIUM. [Suspect]
     Active Substance: METHOTREXATE SODIUM
     Indication: RHEUMATOID ARTHRITIS
     Dosage: UNK
     Route: 048
  3. BUCILLAMINE [Suspect]
     Active Substance: BUCILLAMINE
     Dosage: UNK
     Route: 048

REACTIONS (2)
  - Diffuse large B-cell lymphoma [Recovering/Resolving]
  - Lymphoproliferative disorder [Recovering/Resolving]
